FAERS Safety Report 9212516 (Version 1)
Quarter: 2013Q2

REPORT INFORMATION
  Report Type: Spontaneous
  Country: US (occurrence: US)
  Receive Date: 20130405
  Receipt Date: 20130405
  Transmission Date: 20140414
  Serious: Yes (Other)
  Sender: FDA-Public Use
  Company Number: US-AMGEN-USASP2013022961

PATIENT
  Age: 58 Year
  Sex: Male

DRUGS (4)
  1. PROCRIT [Suspect]
     Indication: ANAEMIA
     Dosage: UNK
  2. TELAPREVIR [Suspect]
     Indication: HEPATITIS C
     Dosage: UNK
     Dates: start: 20120903, end: 20121128
  3. RIBAVIRIN [Suspect]
     Indication: HEPATITIS C
     Dosage: 200 MG, QOD
     Dates: start: 20120903, end: 20130301
  4. PEGASYS [Suspect]
     Indication: HEPATITIS C
     Dosage: UNK
     Route: 058
     Dates: start: 20120903, end: 20130301

REACTIONS (12)
  - Anaemia [Not Recovered/Not Resolved]
  - White blood cell count decreased [Not Recovered/Not Resolved]
  - Confusional state [Not Recovered/Not Resolved]
  - Dry mouth [Not Recovered/Not Resolved]
  - Asthenia [Not Recovered/Not Resolved]
  - Fatigue [Not Recovered/Not Resolved]
  - Drug ineffective [Not Recovered/Not Resolved]
  - Platelet count decreased [Not Recovered/Not Resolved]
  - Rash [Not Recovered/Not Resolved]
  - Pyrexia [Not Recovered/Not Resolved]
  - Stomatitis [Not Recovered/Not Resolved]
  - Cough [Not Recovered/Not Resolved]
